FAERS Safety Report 26076978 (Version 2)
Quarter: 2025Q4

REPORT INFORMATION
  Report Type: Report from Study
  Country: US (occurrence: US)
  Receive Date: 20251121
  Receipt Date: 20251126
  Transmission Date: 20260117
  Serious: Yes (Death, Other)
  Sender: GILEAD
  Company Number: US-GILEAD-2025-0736834

PATIENT
  Sex: Female

DRUGS (1)
  1. SACITUZUMAB GOVITECAN-HZIY [Suspect]
     Active Substance: SACITUZUMAB GOVITECAN-HZIY
     Indication: Neoplasm malignant
     Dosage: 700 MG,VER 3 HOURS ON DAY ONE, THEN OVER 1 HOUR ON DAY 8 OF EVERY 21 DAYS
     Route: 042
     Dates: start: 20251016

REACTIONS (2)
  - Death [Fatal]
  - Terminal state [Unknown]
